FAERS Safety Report 8525362-5 (Version None)
Quarter: 2012Q3

REPORT INFORMATION
  Report Type: 
  Country: None (occurrence: None)
  Receive Date: 20120720
  Receipt Date: 20120720
  Transmission Date: 20120928
  Serious: Yes (Hospitalization)
  Sender: FDA-Public Use
  Company Number: PHHO2012DE009075

PATIENT
  Age: 61 Year
  Sex: Female
  Weight: 78 kg

DRUGS (7)
  1. AMLODIPINE [Concomitant]
     Indication: HYPERTENSION
     Dosage: 5 MG, BID
  2. MYCOPHENOLIC ACID [Suspect]
     Indication: PANCREAS TRANSPLANT
     Dosage: 180 MG, BID
     Route: 048
     Dates: start: 20120221, end: 20120606
  3. PROGRAF [Concomitant]
     Indication: PANCREAS TRANSPLANT
     Dosage: 4 MG, QD
     Dates: start: 20120221
  4. PREDNISOLONE [Concomitant]
     Dosage: 10 MG, QD
     Route: 048
     Dates: start: 20120405
  5. PROGRAF [Concomitant]
     Dosage: 6 MG, QD
     Route: 048
     Dates: start: 20120403
  6. PREDNISOLONE [Concomitant]
     Indication: PANCREAS TRANSPLANT
     Dosage: 5 MG, QD
     Route: 048
     Dates: start: 20120221
  7. BISOPROLOL FUMARATE [Concomitant]
     Indication: HYPERTENSION
     Dosage: 25 MG, BID

REACTIONS (6)
  - RENAL IMPAIRMENT [None]
  - COLITIS [None]
  - DIARRHOEA [None]
  - EPILEPSY [None]
  - CLOSTRIDIUM TEST POSITIVE [None]
  - MUCOSAL INFLAMMATION [None]
